FAERS Safety Report 6674140-0 (Version None)
Quarter: 2010Q2

REPORT INFORMATION
  Report Type: 
  Country: None (occurrence: None)
  Receive Date: 20100407
  Receipt Date: 20100324
  Transmission Date: 20101027
  Serious: Yes (Hospitalization)
  Sender: FDA-Public Use
  Company Number: 2010AP000507

PATIENT
  Age: 32 Year
  Sex: Female

DRUGS (4)
  1. LEFLUNOMIDE [Suspect]
     Indication: RHEUMATOID ARTHRITIS
     Dosage: 20 MG;QD
  2. METHOTREXATE [Concomitant]
  3. HYDROXYCHLOROQUINE SULFATE [Concomitant]
  4. SULPASALAZINE (SULFASALAZINE) [Concomitant]

REACTIONS (4)
  - ALVEOLITIS ALLERGIC [None]
  - DIARRHOEA [None]
  - DRUG TOXICITY [None]
  - URTICARIA [None]
